FAERS Safety Report 25037113 (Version 1)
Quarter: 2025Q1

REPORT INFORMATION
  Report Type: Spontaneous
  Country: RU (occurrence: RU)
  Receive Date: 20250304
  Receipt Date: 20250304
  Transmission Date: 20250409
  Serious: Yes (Other)
  Sender: JOHNSON AND JOHNSON
  Company Number: RU-JNJFOC-20250302496

PATIENT
  Age: 54 Year
  Sex: Female

DRUGS (4)
  1. DARZALEX [Suspect]
     Active Substance: DARATUMUMAB
     Indication: Plasma cell myeloma
  2. VELCADE [Suspect]
     Active Substance: BORTEZOMIB
     Indication: Plasma cell myeloma
  3. REVLIMID [Suspect]
     Active Substance: LENALIDOMIDE
     Indication: Plasma cell myeloma
  4. DEXAMETHASONE [Suspect]
     Active Substance: DEXAMETHASONE
     Indication: Plasma cell myeloma

REACTIONS (6)
  - Myeloma cast nephropathy [Unknown]
  - Neutropenia [Unknown]
  - Thrombocytopenia [Unknown]
  - Polyneuropathy [Unknown]
  - Secondary immunodeficiency [Unknown]
  - Upper respiratory tract infection [Unknown]
